FAERS Safety Report 14975949 (Version 1)
Quarter: 2018Q2

REPORT INFORMATION
  Report Type: Spontaneous
  Country: US (occurrence: US)
  Receive Date: 20180605
  Receipt Date: 20180605
  Transmission Date: 20180711
  Serious: Yes (Other)
  Sender: FDA-Public Use
  Company Number: US-ROCHE-2086546

PATIENT
  Sex: Male

DRUGS (1)
  1. ACTEMRA [Suspect]
     Active Substance: TOCILIZUMAB
     Indication: RHEUMATOID ARTHRITIS
     Dosage: ON 06/MAR/2018, HE HAD HIS LAST DOSE OF WITH TOCILIZUMAB.
     Route: 042
     Dates: start: 20100602

REACTIONS (1)
  - Sinusitis [Unknown]
